FAERS Safety Report 7714626-0 (Version None)
Quarter: 2011Q3

REPORT INFORMATION
  Report Type: 
  Country: None (occurrence: None)
  Receive Date: 20110829
  Receipt Date: 20110825
  Transmission Date: 20111222
  Serious: No
  Sender: FDA-Public Use
  Company Number: US-PFIZER INC-2011198673

PATIENT
  Sex: Female
  Weight: 86.168 kg

DRUGS (6)
  1. ATIVAN [Concomitant]
     Indication: ANXIETY
     Dosage: 0.05 MG, 2X/DAY
     Route: 048
  2. NORVASC [Concomitant]
     Indication: HYPERTENSION
     Dosage: UNK
     Route: 048
  3. TRILEPTAL [Concomitant]
     Indication: AFFECTIVE DISORDER
     Dosage: 900 MG, DAILY
  4. SEROQUEL [Concomitant]
     Dosage: 200 MG, DAILY
  5. PRISTIQ [Suspect]
     Dosage: 100 MG, UNK
     Route: 048
     Dates: start: 20110101
  6. PRISTIQ [Suspect]
     Indication: DEPRESSION
     Dosage: 50 MG, UNK
     Route: 048
     Dates: start: 20110101, end: 20110101

REACTIONS (3)
  - NERVOUSNESS [None]
  - AGITATION [None]
  - TREMOR [None]
